FAERS Safety Report 20151614 (Version 1)
Quarter: 2021Q4

REPORT INFORMATION
  Report Type: Spontaneous
  Country: US (occurrence: None)
  Receive Date: 20211203
  Receipt Date: 20211203
  Transmission Date: 20220304
  Serious: Yes (Other)
  Sender: FDA-Public Use
  Company Number: None

PATIENT
  Age: 40 Year
  Sex: Female
  Weight: 86.85 kg

DRUGS (6)
  1. PROHANCE [Suspect]
     Active Substance: GADOTERIDOL
     Indication: Magnetic resonance imaging
     Dosage: OTHER QUANTITY : 1 INJECTION(S);?OTHER FREQUENCY : ONCE;?
     Route: 042
     Dates: start: 20211128, end: 20211128
  2. OXYCODONE [Concomitant]
     Active Substance: OXYCODONE
  3. TYLENOL [Concomitant]
     Active Substance: ACETAMINOPHEN
  4. Feraheme (one week prior) [Concomitant]
  5. VITAMIN D [Concomitant]
     Active Substance: VITAMIN D NOS
  6. VITAMIN B12 [Concomitant]
     Active Substance: CYANOCOBALAMIN

REACTIONS (3)
  - Muscle spasms [None]
  - Nausea [None]
  - Headache [None]

NARRATIVE: CASE EVENT DATE: 20211128
